FAERS Safety Report 11915863 (Version 1)
Quarter: 2016Q1

REPORT INFORMATION
  Report Type: Report from Study
  Country: FR (occurrence: FR)
  Receive Date: 20160114
  Receipt Date: 20160114
  Transmission Date: 20160526
  Serious: Yes (Other)
  Sender: FDA-Public Use
  Company Number: FR-WATSON-2015-28926

PATIENT
  Age: 58 Year
  Sex: Male

DRUGS (1)
  1. TRELSTAR [Suspect]
     Active Substance: TRIPTORELIN PAMOATE
     Indication: PROSTATE CANCER
     Dosage: UNK, UNKNOWN
     Route: 065
     Dates: start: 201502, end: 201506

REACTIONS (3)
  - Prostatic specific antigen increased [Unknown]
  - Metastasis [Unknown]
  - Adverse drug reaction [Unknown]
